FAERS Safety Report 15067951 (Version 3)
Quarter: 2018Q3

REPORT INFORMATION
  Report Type: Report from Study
  Country: US (occurrence: US)
  Receive Date: 20180626
  Receipt Date: 20180830
  Transmission Date: 20181010
  Serious: Yes (Hospitalization, Other)
  Sender: FDA-Public Use
  Company Number: PHEH2018US024503

PATIENT
  Age: 5 Year
  Sex: Female
  Weight: 15.3 kg

DRUGS (4)
  1. ILARIS [Suspect]
     Active Substance: CANAKINUMAB
     Indication: STILL^S DISEASE
     Dosage: 50 MG, Q4W (EVERY 4 WEEKS)
     Route: 058
     Dates: start: 20170209, end: 20180519
  2. MOTRIN [Concomitant]
     Active Substance: IBUPROFEN
     Indication: PAIN
     Route: 048
  3. TYLENOL [Concomitant]
     Active Substance: ACETAMINOPHEN
     Indication: PAIN
     Route: 048
  4. ILARIS [Suspect]
     Active Substance: CANAKINUMAB
     Dosage: 50 MG, Q4W (EVERY 4 WEEKS)
     Route: 058
     Dates: start: 20180820

REACTIONS (15)
  - Histiocytosis haematophagic [Recovered/Resolved]
  - Platelet count decreased [Unknown]
  - Rash [Unknown]
  - Pyrexia [Unknown]
  - Infectious mononucleosis [Recovered/Resolved]
  - Headache [Unknown]
  - Excessive eye blinking [Unknown]
  - Hypophagia [Unknown]
  - Gamma-glutamyltransferase increased [Unknown]
  - Activated partial thromboplastin time prolonged [Unknown]
  - Nausea [Unknown]
  - Streptococcal infection [Unknown]
  - Urine output decreased [Unknown]
  - Liver function test increased [Unknown]
  - Vomiting [Unknown]

NARRATIVE: CASE EVENT DATE: 20180611
